FAERS Safety Report 13929706 (Version 7)
Quarter: 2018Q3

REPORT INFORMATION
  Report Type: Spontaneous
  Country: DE (occurrence: DE)
  Receive Date: 20170901
  Receipt Date: 20180926
  Transmission Date: 20181010
  Serious: Yes (Death, Life-Threatening, Hospitalization, Other)
  Sender: FDA-Public Use
  Company Number: DE-009507513-1709DEU000099

PATIENT
  Sex: Female

DRUGS (9)
  1. MIRTAZAPINE. [Interacting]
     Active Substance: MIRTAZAPINE
     Indication: ANTIDEPRESSANT THERAPY
     Dosage: QUANTITY 23.5, 7.5G OVERRAL DOSE ABSOLUTE;  DOSE PER KG BODY WEIGHT: 13 MG/KG
     Route: 048
  2. SINUPRET [Suspect]
     Active Substance: HERBALS
     Indication: SUICIDE ATTEMPT
     Dosage: QUANTITY 5
  3. QUETIAPINE FUMARATE. [Interacting]
     Active Substance: QUETIAPINE FUMARATE
     Indication: IRRITABILITY
  4. QUETIAPINE FUMARATE. [Interacting]
     Active Substance: QUETIAPINE FUMARATE
     Indication: SUICIDE ATTEMPT
     Dosage: 5.8 G. QUANTITY 29
  5. QUETIAPINE FUMARATE. [Interacting]
     Active Substance: QUETIAPINE FUMARATE
     Indication: SUICIDE ATTEMPT
     Dosage: 8.7G; QUANTITY 29; ABSOLUTE OVERRAL DOSE 14.5 G, DOSE 25 MG/KG PER KG BODY WEIGHT
  6. MIRTAZAPINE. [Suspect]
     Active Substance: MIRTAZAPINE
     Indication: SUICIDE ATTEMPT
     Dosage: UNK
     Route: 048
  7. QUETIAPINE FUMARATE. [Interacting]
     Active Substance: QUETIAPINE FUMARATE
     Indication: IRRITABILITY
  8. IBUPROFEN. [Suspect]
     Active Substance: IBUPROFEN
     Indication: SUICIDE ATTEMPT
     Dosage: 2 G, OVERRAL DOSE. QUANTITY 5
  9. IBUPROFEN. [Suspect]
     Active Substance: IBUPROFEN
     Indication: SUICIDE ATTEMPT
     Dosage: QUANTITY 5; 3 G OVERRAL DOSE; ABSOLUTE OVERALL DOSE 5 G. DOSE; 8 MG/KG BODY WEIGHT

REACTIONS (9)
  - Hypoxia [Unknown]
  - Hypotension [Unknown]
  - Toxicity to various agents [Unknown]
  - Acute respiratory distress syndrome [Unknown]
  - Loss of consciousness [Unknown]
  - Respiratory failure [Fatal]
  - Drug interaction [Unknown]
  - Off label use [Unknown]
  - Seizure [Unknown]
